FAERS Safety Report 7831506-0 (Version None)
Quarter: 2011Q4

REPORT INFORMATION
  Report Type: 
  Country: None (occurrence: None)
  Receive Date: 20111021
  Receipt Date: 20111021
  Transmission Date: 20120403
  Serious: Yes (Other)
  Sender: FDA-Public Use
  Company Number: None

PATIENT
  Age: 28 Year
  Sex: Female
  Weight: 65.77 kg

DRUGS (1)
  1. TRANSDERM SCOP [Suspect]
     Indication: VERTIGO
     Dosage: 1 PATCH
     Route: 062
     Dates: start: 20110927, end: 20110930

REACTIONS (20)
  - DRY MOUTH [None]
  - WITHDRAWAL SYNDROME [None]
  - PANIC ATTACK [None]
  - HYPERAESTHESIA [None]
  - FEAR [None]
  - FEELING ABNORMAL [None]
  - THERAPEUTIC RESPONSE DECREASED [None]
  - CONFUSIONAL STATE [None]
  - HYPERHIDROSIS [None]
  - HYPERACUSIS [None]
  - INSOMNIA [None]
  - APPLICATION SITE PAIN [None]
  - CONDITION AGGRAVATED [None]
  - APPLICATION SITE IRRITATION [None]
  - VERTIGO [None]
  - HEART RATE IRREGULAR [None]
  - PHOTOPHOBIA [None]
  - PALPITATIONS [None]
  - IRRITABILITY [None]
  - IMPAIRED WORK ABILITY [None]
